FAERS Safety Report 8478537-8 (Version None)
Quarter: 2012Q2

REPORT INFORMATION
  Report Type: 
  Country: None (occurrence: None)
  Receive Date: 20120618
  Receipt Date: 20120327
  Transmission Date: 20120825
  Serious: Yes (Hospitalization)
  Sender: FDA-Public Use
  Company Number: 2012SP017024

PATIENT
  Sex: Male
  Weight: 82 kg

DRUGS (4)
  1. PEGINTERFERON ALFA-2A [Suspect]
     Indication: HEPATITIS C
     Dosage: 180 MCG;QW;SC
     Route: 058
     Dates: start: 20110728
  2. RIBAVIRIN [Suspect]
     Indication: HEPATITIS C
     Dosage: 1200 MG; PO
     Route: 048
     Dates: start: 20110728
  3. CITALOPRAM HYDROBROMIDE [Concomitant]
  4. VICTRELIS [Suspect]
     Indication: HEPATITIS C
     Dosage: 2400 MG; PO
     Route: 048
     Dates: start: 20110825

REACTIONS (1)
  - ANAL HAEMORRHAGE [None]
